FAERS Safety Report 6054836-4 (Version None)
Quarter: 2009Q1

REPORT INFORMATION
  Report Type: 
  Country: None (occurrence: None)
  Receive Date: 20090128
  Receipt Date: 20090116
  Transmission Date: 20090719
  Serious: Yes (Hospitalization)
  Sender: FDA-Public Use
  Company Number: US-ROCHE-608872

PATIENT
  Sex: Female
  Weight: 63.5 kg

DRUGS (1)
  1. CAPECITABINE [Suspect]
     Indication: COLORECTAL CANCER
     Dosage: 2 WEEKS ON AND 1 WEEK OFF
     Route: 048
     Dates: start: 20081203, end: 20081217

REACTIONS (1)
  - CROHN'S DISEASE [None]
